FAERS Safety Report 9245326 (Version 1)
Quarter: 2013Q1

REPORT INFORMATION
  Report Type: Spontaneous
  Country: US (occurrence: None)
  Receive Date: 20121130
  Receipt Date: 20121130
  Transmission Date: 20140127
  Serious: Yes (Hospitalization)
  Sender: FDA-Public Use
  Company Number: 356074

PATIENT
  Age: 44 Year
  Sex: Female
  Weight: 83.9 kg

DRUGS (1)
  1. NOVOLOG (INSULIN ASPART) SOLUTION FOR INJECTION, 100U/ML [Suspect]
     Indication: TYPE 1 DIABETES MELLITUS
     Dosage: SLIDING SCALE, SUBCUTAN-PUMP
     Dates: start: 2006

REACTIONS (3)
  - Diabetic ketoacidosis [None]
  - Blood sodium decreased [None]
  - Blood potassium decreased [None]
